FAERS Safety Report 15853806 (Version 1)
Quarter: 2019Q1

REPORT INFORMATION
  Report Type: Spontaneous
  Country: US (occurrence: US)
  Receive Date: 20190121
  Receipt Date: 20190121
  Transmission Date: 20190417
  Serious: Yes (Hospitalization)
  Sender: FDA-Public Use
  Company Number: None

PATIENT
  Age: 74 Year
  Sex: Male
  Weight: 97 kg

DRUGS (1)
  1. WARFARIN [Suspect]
     Active Substance: WARFARIN
     Route: 048

REACTIONS (6)
  - Cerebrovascular accident [None]
  - Haemorrhage [None]
  - Anticoagulation drug level above therapeutic [None]
  - Headache [None]
  - Cerebral infarction [None]
  - Computerised tomogram head abnormal [None]

NARRATIVE: CASE EVENT DATE: 20190116
